FAERS Safety Report 4662637-4 (Version None)
Quarter: 2005Q2

REPORT INFORMATION
  Report Type: 
  Country: None (occurrence: None)
  Receive Date: 20050513
  Receipt Date: 20050513
  Transmission Date: 20051028
  Serious: Yes (Hospitalization)
  Sender: FDA-Public Use
  Company Number: None

PATIENT
  Age: 84 Year
  Sex: Female
  Weight: 77 kg

DRUGS (2)
  1. WARFARIN   5 MG [Suspect]
     Indication: ATRIAL FIBRILLATION
     Dosage: 7.5 MG   DAILY   ORAL
     Route: 048
     Dates: start: 20040219, end: 20040229
  2. AZITHROMYCIN [Suspect]
     Indication: CHRONIC OBSTRUCTIVE AIRWAYS DISEASE EXACERBATED
     Dosage: 250 MG   DAILY   ORAL
     Route: 048
     Dates: start: 20040218, end: 20040303

REACTIONS (5)
  - CHRONIC OBSTRUCTIVE AIRWAYS DISEASE EXACERBATED [None]
  - DYSPNOEA [None]
  - ECCHYMOSIS [None]
  - INTERNATIONAL NORMALISED RATIO INCREASED [None]
  - PNEUMONIA [None]
